FAERS Safety Report 20176991 (Version 1)
Quarter: 2021Q4

REPORT INFORMATION
  Report Type: Spontaneous
  Country: IT (occurrence: None)
  Receive Date: 20211213
  Receipt Date: 20211213
  Transmission Date: 20220304
  Serious: Yes (Death, Hospitalization)
  Sender: FDA-Public Use
  Company Number: 2021A869430

PATIENT
  Age: 81 Year

DRUGS (1)
  1. DURVALUMAB [Suspect]
     Active Substance: DURVALUMAB
     Indication: Non-small cell lung cancer stage IIIA
     Dosage: 10MG/KG
     Route: 042

REACTIONS (5)
  - Cardiopulmonary failure [Fatal]
  - Respiratory failure [Unknown]
  - Pneumothorax [Unknown]
  - Pneumomediastinum [Unknown]
  - Immune-mediated lung disease [Unknown]
